FAERS Safety Report 7496496-1 (Version None)
Quarter: 2011Q2

REPORT INFORMATION
  Report Type: 
  Country: None (occurrence: None)
  Receive Date: 20110523
  Receipt Date: 20110510
  Transmission Date: 20111010
  Serious: Yes (Hospitalization)
  Sender: FDA-Public Use
  Company Number: IT-ROCHE-776489

PATIENT
  Sex: Female

DRUGS (5)
  1. LANSOPRAZOLE [Concomitant]
     Dosage: UNKNOWN TRADE NAME
  2. CHOLECALCIFEROL [Concomitant]
     Dosage: ORALLY 25 DROPS WEEKLY
     Route: 048
  3. ASPIRIN [Concomitant]
  4. MYCOPHENOLATE MOFETIL [Suspect]
     Indication: SYSTEMIC LUPUS ERYTHEMATOSUS
     Dosage: FREQUENCY : DAILY
     Route: 048
     Dates: start: 20100701, end: 20110103
  5. PREDNISONE [Concomitant]
     Dosage: UNKNOWN TRADENAME

REACTIONS (2)
  - ANGIOEDEMA [None]
  - PRURITUS GENERALISED [None]
